FAERS Safety Report 8954362 (Version 2)
Quarter: 2013Q1

REPORT INFORMATION
  Report Type: Spontaneous
  Country: CH (occurrence: CH)
  Receive Date: 20121207
  Receipt Date: 20130118
  Transmission Date: 20140127
  Serious: Yes (Disabling, Congenital Anomaly)
  Sender: FDA-Public Use
  Company Number: CH-ABBOTT-12P-151-1015268-00

PATIENT
  Sex: 0

DRUGS (3)
  1. KALETRA [Suspect]
     Indication: MATERNAL EXPOSURE TIMING UNSPECIFIED
     Route: 064
  2. RETROVIR AZT [Suspect]
     Indication: MATERNAL EXPOSURE TIMING UNSPECIFIED
     Route: 064
  3. VIREAD [Suspect]
     Indication: MATERNAL EXPOSURE TIMING UNSPECIFIED
     Route: 064

REACTIONS (2)
  - Trisomy 21 [Recovered/Resolved with Sequelae]
  - Foetal exposure during pregnancy [Unknown]
